FAERS Safety Report 9991718 (Version 1)
Quarter: 2014Q1

REPORT INFORMATION
  Report Type: Report from Study
  Country: US (occurrence: US)
  Receive Date: 20140310
  Receipt Date: 20140310
  Transmission Date: 20141002
  Serious: Yes (Hospitalization)
  Sender: FDA-Public Use
  Company Number: US-GLAXOSMITHKLINE-A1007173B

PATIENT
  Age: 72 Year
  Sex: Male
  Weight: 86.1 kg

DRUGS (2)
  1. OFATUMUMAB [Suspect]
     Indication: CHRONIC LYMPHOCYTIC LEUKAEMIA
     Dosage: 2000MG CYCLIC
     Route: 042
     Dates: end: 20121129
  2. LENALIDOMIDE [Suspect]
     Indication: CHRONIC LYMPHOCYTIC LEUKAEMIA
     Dosage: 5MG PER DAY
     Route: 048
     Dates: start: 20120604

REACTIONS (3)
  - Pseudomonas infection [Unknown]
  - Rhinovirus infection [Unknown]
  - Febrile neutropenia [Unknown]
